FAERS Safety Report 18149221 (Version 2)
Quarter: 2020Q3

REPORT INFORMATION
  Report Type: Spontaneous
  Country: ES (occurrence: ES)
  Receive Date: 20200813
  Receipt Date: 20200818
  Transmission Date: 20201103
  Serious: Yes (Death, Other)
  Sender: FDA-Public Use
  Company Number: ES-BAXTER-2020BAX016506

PATIENT
  Age: 53 Year
  Sex: Female

DRUGS (9)
  1. CARBOPLATIN. [Suspect]
     Active Substance: CARBOPLATIN
     Indication: LUNG NEOPLASM MALIGNANT
     Dosage: AREA UNDER CURVE 6; EIGHT CYCLES; CYCLICAL
     Route: 065
     Dates: start: 201210, end: 201308
  2. PACLITAXEL. [Suspect]
     Active Substance: PACLITAXEL
     Route: 065
     Dates: start: 201110, end: 201207
  3. CARBOPLATIN. [Suspect]
     Active Substance: CARBOPLATIN
     Indication: SQUAMOUS CELL CARCINOMA OF THE CERVIX
     Dosage: AUC OF 5; 4 CYCLES 4080 MG TOTAL ACCUMULATED DOSE SINCE UNK, CYCLIC (4 CYCLES (AUC 5)) CYCLICAL
     Route: 065
     Dates: start: 201401
  4. DOXIL [Suspect]
     Active Substance: DOXORUBICIN HYDROCHLORIDE
     Indication: SQUAMOUS CELL CARCINOMA OF THE CERVIX
     Route: 065
     Dates: start: 201401
  5. MYOCET [Suspect]
     Active Substance: DOXORUBICIN
     Indication: SQUAMOUS CELL CARCINOMA OF THE CERVIX
     Dosage: 4 CYCLES; CYCLICAL
     Route: 065
     Dates: start: 201401
  6. MYOCET [Suspect]
     Active Substance: DOXORUBICIN
     Indication: LUNG NEOPLASM MALIGNANT
  7. TOPOTECAN [Suspect]
     Active Substance: TOPOTECAN HYDROCHLORIDE
     Indication: SQUAMOUS CELL CARCINOMA OF THE CERVIX
     Dosage: FIRST?LINE TREATMENT FOR SIX CYCLES; CUMULATIVE DOSE WAS 21MG
     Route: 065
     Dates: start: 201102, end: 201105
  8. CISPLATIN. [Suspect]
     Active Substance: CISPLATIN
     Indication: SQUAMOUS CELL CARCINOMA OF THE CERVIX
     Dosage: FIRST?LINE TREATMENT FOR SIX CYCLES; CUMULATIVE DOSE WAS 477MG
     Route: 065
     Dates: start: 201102, end: 201105
  9. PACLITAXEL. [Suspect]
     Active Substance: PACLITAXEL
     Indication: SQUAMOUS CELL CARCINOMA OF THE CERVIX
     Dosage: 8 CYCLES; 2100 MG TOTAL ACCUMULATED DOSE SINCE THE INITIATION OF PACLITAXEL THERAPY; CYCLICAL
     Route: 065
     Dates: start: 201210, end: 201308

REACTIONS (9)
  - Bicytopenia [Unknown]
  - Acute myeloid leukaemia [Unknown]
  - General physical health deterioration [Unknown]
  - Thrombocytopenia [Unknown]
  - Death [Fatal]
  - Petechiae [Unknown]
  - Second primary malignancy [Unknown]
  - Epistaxis [Unknown]
  - Anaemia [Unknown]

NARRATIVE: CASE EVENT DATE: 201403
